FAERS Safety Report 18114706 (Version 1)
Quarter: 2020Q3

REPORT INFORMATION
  Report Type: Spontaneous
  Country: JP (occurrence: JP)
  Receive Date: 20200805
  Receipt Date: 20200805
  Transmission Date: 20201103
  Serious: Yes (Other)
  Sender: FDA-Public Use
  Company Number: JP-PFIZER INC-2020291742

PATIENT

DRUGS (1)
  1. DIFLUCAN [Suspect]
     Active Substance: FLUCONAZOLE
     Indication: CRYPTOCOCCOSIS
     Dosage: 100 MG, 3 TIMES A WEEK
     Route: 048

REACTIONS (3)
  - Creatinine renal clearance decreased [Unknown]
  - Renal impairment [Unknown]
  - Off label use [Unknown]
